FAERS Safety Report 5455417-3 (Version None)
Quarter: 2007Q3

REPORT INFORMATION
  Report Type: 
  Country: None (occurrence: None)
  Receive Date: 20070913
  Receipt Date: 20070913
  Transmission Date: 20080115
  Serious: Yes (Other)
  Sender: FDA-Public Use
  Company Number: None

PATIENT
  Sex: Female
  Weight: 68.18 kg

DRUGS (1)
  1. HALOPERIDOL [Suspect]
     Dosage: IV
     Route: 042

REACTIONS (2)
  - TACHYPNOEA [None]
  - WHEEZING [None]
